FAERS Safety Report 9105276 (Version 1)
Quarter: 2013Q1

REPORT INFORMATION
  Report Type: Spontaneous
  Country: US (occurrence: US)
  Receive Date: 20130220
  Receipt Date: 20130220
  Transmission Date: 20140127
  Serious: Yes (Other)
  Sender: FDA-Public Use
  Company Number: US-GLAXOSMITHKLINE-A1012056A

PATIENT
  Age: 57 Year
  Sex: Male

DRUGS (2)
  1. LAMOTRIGINE [Suspect]
     Indication: CONVULSION
     Route: 048
  2. NO CONCURRENT MEDICATION [Concomitant]

REACTIONS (1)
  - Blindness [Not Recovered/Not Resolved]
